FAERS Safety Report 23101399 (Version 1)
Quarter: 2023Q4

REPORT INFORMATION
  Report Type: Report from Study
  Country: DE (occurrence: DE)
  Receive Date: 20231024
  Receipt Date: 20231024
  Transmission Date: 20240109
  Serious: Yes (Hospitalization, Other)
  Sender: FDA-Public Use
  Company Number: DE-ABBVIE-5459097

PATIENT
  Sex: Male

DRUGS (4)
  1. HUMIRA [Suspect]
     Active Substance: ADALIMUMAB
     Indication: Rheumatoid arthritis
     Route: 058
     Dates: start: 20111201
  2. PREDNISOLONE [Concomitant]
     Active Substance: PREDNISOLONE
     Indication: Rheumatoid arthritis
     Route: 048
  3. CITALOPRAM [Concomitant]
     Active Substance: CITALOPRAM HYDROBROMIDE
     Indication: Depression
     Route: 048
  4. NAPROXEN [Concomitant]
     Active Substance: NAPROXEN
     Indication: Osteoarthritis
     Route: 048

REACTIONS (3)
  - Penile cyst [Recovered/Resolved]
  - Cyst [Not Recovered/Not Resolved]
  - Knee operation [Unknown]

NARRATIVE: CASE EVENT DATE: 20230101
